FAERS Safety Report 4273727-2 (Version None)
Quarter: 2004Q1

REPORT INFORMATION
  Report Type: 
  Country: None (occurrence: None)
  Receive Date: 20040116
  Receipt Date: 20040116
  Transmission Date: 20041129
  Serious: Yes (Other)
  Sender: FDA-Public Use
  Company Number: None

PATIENT
  Sex: Male

DRUGS (2)
  1. SOMA [Suspect]
     Indication: MYALGIA
     Dosage: 2 QHS
     Dates: start: 20011025
  2. SOMA [Suspect]
     Indication: OSTEOARTHRITIS
     Dosage: 2 QHS
     Dates: start: 20011025

REACTIONS (2)
  - DRUG INEFFECTIVE [None]
  - PHARMACEUTICAL PRODUCT COMPLAINT [None]
